FAERS Safety Report 24138687 (Version 2)
Quarter: 2024Q3

REPORT INFORMATION
  Report Type: Report from Study
  Country: IE (occurrence: IE)
  Receive Date: 20240725
  Receipt Date: 20240806
  Transmission Date: 20241017
  Serious: Yes (Hospitalization)
  Sender: JOHNSON AND JOHNSON
  Company Number: IE-JNJFOC-20240749281

PATIENT
  Age: 57 Year
  Sex: Female

DRUGS (7)
  1. STELARA [Suspect]
     Active Substance: USTEKINUMAB
     Indication: Crohn^s disease
     Route: 040
     Dates: start: 20231205
  2. STELARA [Suspect]
     Active Substance: USTEKINUMAB
     Route: 058
     Dates: start: 20240130
  3. KEPPRA [Concomitant]
     Active Substance: LEVETIRACETAM
     Route: 050
  4. KEPPRA [Concomitant]
     Active Substance: LEVETIRACETAM
     Route: 050
  5. DAPTOMYCIN [Concomitant]
     Active Substance: DAPTOMYCIN
  6. CALCIUM CARBONATE [Concomitant]
     Active Substance: CALCIUM CARBONATE
     Route: 050
  7. IRON [Concomitant]
     Active Substance: IRON
     Route: 050

REACTIONS (4)
  - Mental status changes [Recovered/Resolved]
  - Dry skin [Unknown]
  - Nail discolouration [Unknown]
  - Functional gastrointestinal disorder [Unknown]

NARRATIVE: CASE EVENT DATE: 20240521
